FAERS Safety Report 8407328-9 (Version None)
Quarter: 2012Q2

REPORT INFORMATION
  Report Type: 
  Country: None (occurrence: None)
  Receive Date: 20120604
  Receipt Date: 20120525
  Transmission Date: 20120825
  Serious: Yes (Other)
  Sender: FDA-Public Use
  Company Number: FR-PFIZER INC-2012126563

PATIENT
  Age: 55 Year
  Sex: Male

DRUGS (9)
  1. FOLIC ACID [Concomitant]
     Dosage: 1X/DAY
     Route: 048
     Dates: start: 20120201
  2. NEUPOGEN [Suspect]
     Indication: ACUTE MYELOMONOCYTIC LEUKAEMIA
     Dosage: 450 /MM3, 1X/DAY (5 UG/KG/DAY)
     Route: 042
     Dates: start: 20120223, end: 20120301
  3. CYTARABINE [Suspect]
     Indication: ACUTE MYELOMONOCYTIC LEUKAEMIA
     Dosage: 1 G, 1X/DAY (500 MG/M2)
     Route: 042
     Dates: start: 20120223, end: 20120225
  4. CERUBIDINE [Suspect]
     Indication: ACUTE MYELOMONOCYTIC LEUKAEMIA
     Dosage: 120 MG, 1X/DAY (60 MG/M2)
     Route: 042
     Dates: start: 20120223, end: 20120225
  5. ZOFRAN [Concomitant]
     Indication: PROPHYLAXIS OF NAUSEA AND VOMITING
     Dosage: 8 MG, UNK
     Route: 042
     Dates: start: 20120223, end: 20120225
  6. PRIMPERAN TAB [Suspect]
     Indication: VOMITING
     Dosage: 2 TO 5 VIALS
     Route: 042
     Dates: start: 20120224
  7. LASIX [Concomitant]
     Dosage: UNK
     Route: 042
     Dates: start: 20120224, end: 20120226
  8. HYDREA [Concomitant]
     Indication: ACUTE MYELOMONOCYTIC LEUKAEMIA
     Dosage: UNK
     Route: 048
     Dates: start: 20120206
  9. PARACETAMOL [Concomitant]
     Dosage: UNK
     Route: 048
     Dates: start: 20120225, end: 20120226

REACTIONS (2)
  - HYPERBILIRUBINAEMIA [None]
  - CHOLESTASIS [None]
